FAERS Safety Report 7080603-9 (Version None)
Quarter: 2010Q4

REPORT INFORMATION
  Report Type: 
  Country: None (occurrence: None)
  Receive Date: 20101103
  Receipt Date: 20101025
  Transmission Date: 20110411
  Serious: Yes (Other)
  Sender: FDA-Public Use
  Company Number: JP-ASTRAZENECA-2010SE43455

PATIENT
  Age: 32359 Day
  Sex: Male
  Weight: 45 kg

DRUGS (6)
  1. SEROQUEL [Suspect]
     Indication: DEMENTIA
     Route: 048
     Dates: start: 20100809, end: 20100818
  2. ZOSYN [Concomitant]
     Indication: PNEUMONIA
     Route: 065
     Dates: start: 20100803, end: 20100810
  3. TAMSULOSIN HCL [Concomitant]
     Dates: start: 20100812
  4. SLOW-K [Concomitant]
     Indication: HYPOKALAEMIA
     Dates: start: 20100811, end: 20100818
  5. DASEN [Concomitant]
     Indication: PNEUMONIA
     Route: 048
     Dates: start: 20100811
  6. TULOBUTEROL [Concomitant]
     Indication: PNEUMONIA
     Route: 065

REACTIONS (1)
  - ERYTHEMA MULTIFORME [None]
